FAERS Safety Report 4438431-6 (Version None)
Quarter: 2004Q3

REPORT INFORMATION
  Report Type: 
  Country: None (occurrence: None)
  Receive Date: 20040827
  Receipt Date: 20040818
  Transmission Date: 20050211
  Serious: Yes (Hospitalization)
  Sender: FDA-Public Use
  Company Number: NO-2004-030495

PATIENT
  Age: 18 Year
  Sex: Female

DRUGS (3)
  1. YASMIN [Suspect]
     Indication: ORAL CONTRACEPTION
  2. CIPROFLOXACIN [Suspect]
     Indication: PYELONEPHRITIS
  3. PARACET [Concomitant]

REACTIONS (5)
  - DERMATITIS EXFOLIATIVE [None]
  - DYSPNOEA [None]
  - INFECTIOUS MONONUCLEOSIS [None]
  - PHOTOSENSITIVITY REACTION [None]
  - RASH PRURITIC [None]
